FAERS Safety Report 10176167 (Version 1)
Quarter: 2014Q2

REPORT INFORMATION
  Report Type: Spontaneous
  Country: US (occurrence: None)
  Receive Date: 20140425
  Receipt Date: 20140425
  Transmission Date: 20141212
  Serious: No
  Sender: FDA-Public Use
  Company Number: AP356-00489-SPO-US

PATIENT
  Age: 62 Year
  Sex: Female
  Weight: 98 kg

DRUGS (8)
  1. BELVIQ [Suspect]
     Indication: WEIGHT DECREASED
     Route: 048
     Dates: start: 201311, end: 20140228
  2. BAYER ASPIRIN [Suspect]
     Route: 048
  3. VITAMINS [Suspect]
  4. METOPROLOL (METOPROLOL) [Concomitant]
  5. FUROSEMIDE (FUROSEMIDE) [Concomitant]
  6. KLOR-CON (POTASSIUM CHLORIDE) [Concomitant]
  7. OMEPRAZOLE (OMEPRAZOLE) [Concomitant]
  8. BLACK COHOSH (HERBAL PREPARATION) [Concomitant]

REACTIONS (1)
  - Drug ineffective [None]
